FAERS Safety Report 13673240 (Version 4)
Quarter: 2018Q2

REPORT INFORMATION
  Report Type: Spontaneous
  Country: JP (occurrence: JP)
  Receive Date: 20170621
  Receipt Date: 20180402
  Transmission Date: 20180711
  Serious: Yes (Death, Life-Threatening, Hospitalization, Other)
  Sender: FDA-Public Use
  Company Number: JP-009507513-1706JPN001157J

PATIENT
  Age: 70 Year
  Sex: Male
  Weight: 58 kg

DRUGS (2)
  1. RINDERON V [Concomitant]
     Active Substance: BETAMETHASONE VALERATE
     Dosage: 4 MG, QD
     Route: 051
     Dates: start: 20170601, end: 20170605
  2. KEYTRUDA [Suspect]
     Active Substance: PEMBROLIZUMAB
     Indication: SQUAMOUS CELL CARCINOMA OF LUNG
     Dosage: 200 MG, Q3W
     Route: 041
     Dates: start: 20170607

REACTIONS (2)
  - Lymphangiosis carcinomatosa [Fatal]
  - Malignant neoplasm progression [Fatal]

NARRATIVE: CASE EVENT DATE: 20170608
